FAERS Safety Report 9889084 (Version 2)
Quarter: 2014Q2

REPORT INFORMATION
  Report Type: Spontaneous
  Country: US (occurrence: US)
  Receive Date: 20140211
  Receipt Date: 20140411
  Transmission Date: 20141212
  Serious: Yes (Hospitalization)
  Sender: FDA-Public Use
  Company Number: US-BAYER-2014-021106

PATIENT
  Age: 39 Year
  Sex: Female
  Weight: 48.98 kg

DRUGS (7)
  1. MIRENA [Suspect]
     Indication: CONTRACEPTION
     Dosage: 20 MCG/24HR, CONT
     Route: 015
     Dates: start: 20081121, end: 20090624
  2. LORTAB [Concomitant]
  3. MOTRIN [Concomitant]
     Dosage: 800 MG, UNK
  4. KLONOPIN [Concomitant]
     Indication: ANXIETY
     Dosage: 0.5MG (THREE TIMES PER DAY)
     Route: 048
     Dates: start: 2005, end: 2010
  5. PRISTIQ [Concomitant]
     Dosage: 50 MG, UNK
     Route: 048
  6. XANAX [Concomitant]
     Dosage: AS NEEDED
     Route: 048
  7. PERCOCET [Concomitant]

REACTIONS (7)
  - Uterine perforation [None]
  - Injury [None]
  - Pain [None]
  - Emotional distress [None]
  - Depression [None]
  - Anxiety [None]
  - Device issue [None]
